FAERS Safety Report 8507836-6 (Version None)
Quarter: 2012Q3

REPORT INFORMATION
  Report Type: 
  Country: None (occurrence: None)
  Receive Date: 20120713
  Receipt Date: 20120709
  Transmission Date: 20120928
  Serious: Yes (Other)
  Sender: FDA-Public Use
  Company Number: PHHY2012FR043545

PATIENT
  Sex: Female
  Weight: 58 kg

DRUGS (2)
  1. IMATINIB MESYLATE [Suspect]
     Indication: CHRONIC MYELOID LEUKAEMIA
     Dosage: 500 MG, DAILY
     Dates: start: 20020901
  2. LEXOMIL [Concomitant]

REACTIONS (4)
  - VISUAL IMPAIRMENT [None]
  - BLINDNESS [None]
  - FACIAL SPASM [None]
  - AGE-RELATED MACULAR DEGENERATION [None]
